FAERS Safety Report 7622664-1 (Version None)
Quarter: 2011Q3

REPORT INFORMATION
  Report Type: 
  Country: None (occurrence: None)
  Receive Date: 20110712
  Receipt Date: 20110629
  Transmission Date: 20111222
  Serious: Yes (Hospitalization, Other)
  Sender: FDA-Public Use
  Company Number: 2011MA008207

PATIENT
  Age: 79 Year
  Sex: Female
  Weight: 71.2147 kg

DRUGS (22)
  1. SOMA [Suspect]
  2. VITAMIN D [Suspect]
  3. MELATONIN [Concomitant]
  4. HYDROCODONE BITARTRATE [Suspect]
  5. PREDNISONE [Suspect]
  6. PREVACID [Suspect]
  7. TRIAMTERENE AND HYDROCHLOROTHIAZIDE [Concomitant]
  8. IPRATROPIUM BROMIDE [Concomitant]
  9. TRAMADOL HCL [Suspect]
  10. VENLAFAXINE [Suspect]
  11. AZITHROMYCIN [Suspect]
  12. CODEINE SULFATE [Suspect]
  13. METOPROLOL TARTRATE [Concomitant]
  14. VALSARTAN [Concomitant]
  15. CALCIUM, MAGNESIUM [Concomitant]
  16. NEURONTIN [Suspect]
     Indication: NEUROPATHY PERIPHERAL
  17. MOTRIN [Suspect]
  18. IMODIUM MULTI-SYMPTOM RELIEF [Concomitant]
  19. PREGABALIN [Suspect]
     Indication: FIBROMYALGIA
     Dosage: 50 MG;QD;PO
     Route: 048
     Dates: start: 20110527, end: 20110528
  20. RANITIDINE [Concomitant]
  21. CIPROFLOXACIN [Suspect]
  22. ASPIRIN [Concomitant]

REACTIONS (11)
  - DRUG INTOLERANCE [None]
  - ARTHRALGIA [None]
  - ABDOMINAL DISCOMFORT [None]
  - SOMNOLENCE [None]
  - PRURITUS [None]
  - ACTIVITIES OF DAILY LIVING IMPAIRED [None]
  - VISUAL IMPAIRMENT [None]
  - ABDOMINAL PAIN UPPER [None]
  - CHEST PAIN [None]
  - HYPOTENSION [None]
  - DIZZINESS [None]
